FAERS Safety Report 9991172 (Version 1)
Quarter: 2014Q1

REPORT INFORMATION
  Report Type: Report from Study
  Country: US (occurrence: US)
  Receive Date: 20140310
  Receipt Date: 20140310
  Transmission Date: 20141002
  Serious: No
  Sender: FDA-Public Use
  Company Number: US-ABBVIE-13P-163-1131703-00

PATIENT
  Sex: Female

DRUGS (4)
  1. HUMIRA [Suspect]
     Indication: PSORIASIS
     Dates: start: 200906
  2. LISINOPRIL [Concomitant]
     Indication: HYPERTENSION
  3. A STATIN DRUG [Concomitant]
     Indication: BLOOD CHOLESTEROL INCREASED
  4. A THYROID DRUG [Concomitant]
     Indication: HYPOTHYROIDISM

REACTIONS (1)
  - Psoriasis [Not Recovered/Not Resolved]
